FAERS Safety Report 5237243-3 (Version None)
Quarter: 2007Q1

REPORT INFORMATION
  Report Type: 
  Country: None (occurrence: None)
  Receive Date: 20070213
  Receipt Date: 20070201
  Transmission Date: 20070707
  Serious: Yes (Death, Other)
  Sender: FDA-Public Use
  Company Number: FR-GILEAD-2007-0011269

PATIENT
  Sex: Male

DRUGS (18)
  1. TRUVADA [Suspect]
     Indication: HIV INFECTION
     Dates: start: 20050715, end: 20050729
  2. TRUVADA [Suspect]
     Dates: start: 20050620, end: 20050624
  3. FUZEON [Suspect]
     Indication: HIV INFECTION
     Dates: start: 20050620, end: 20050624
  4. FUZEON [Suspect]
     Dates: start: 20050715
  5. KALETRA [Suspect]
     Indication: HIV INFECTION
     Dates: start: 20050620, end: 20050624
  6. KALETRA [Suspect]
     Dates: start: 20050721
  7. EFAVIRENZ [Suspect]
     Indication: HIV INFECTION
     Dates: start: 20050620, end: 20050624
  8. EFAVIRENZ [Suspect]
     Dates: start: 20050726
  9. COTRIM [Suspect]
     Indication: PROPHYLAXIS
     Dates: start: 20050330, end: 20050624
  10. COTRIM [Suspect]
     Dates: start: 20050712
  11. MORPHINE [Concomitant]
     Indication: PAIN
     Dates: start: 20050615, end: 20050624
  12. OMEPRAZOLE [Concomitant]
     Dates: start: 20050715
  13. LOVENOX [Concomitant]
     Dates: start: 20050715
  14. PREDNISONE [Concomitant]
     Dates: start: 20050715
  15. HEXETIDINE [Concomitant]
     Dates: start: 20050716
  16. ATARAX [Concomitant]
     Dates: start: 20050716
  17. SODIUM BICARBONATE [Concomitant]
     Dates: start: 20050716
  18. PARACETAMOL [Concomitant]
     Dates: start: 20050728

REACTIONS (6)
  - ALANINE AMINOTRANSFERASE INCREASED [None]
  - ASPARTATE AMINOTRANSFERASE INCREASED [None]
  - BLOOD ALKALINE PHOSPHATASE INCREASED [None]
  - BLOOD BILIRUBIN INCREASED [None]
  - GAMMA-GLUTAMYLTRANSFERASE INCREASED [None]
  - PROGRESSIVE MULTIFOCAL LEUKOENCEPHALOPATHY [None]
